FAERS Safety Report 21855365 (Version 1)
Quarter: 2023Q1

REPORT INFORMATION
  Report Type: Spontaneous
  Country: JP (occurrence: JP)
  Receive Date: 20230112
  Receipt Date: 20230112
  Transmission Date: 20230418
  Serious: Yes (Hospitalization, Other)
  Sender: FDA-Public Use
  Company Number: JP-AMNEAL PHARMACEUTICALS-2023-AMRX-00080

PATIENT
  Sex: Female
  Weight: 58.5 kg

DRUGS (6)
  1. LACOSAMIDE [Suspect]
     Active Substance: LACOSAMIDE
     Indication: Product used for unknown indication
     Dosage: 328 TABLETS OF 50 MG LCM (I.E., A TOTAL OF 16,400 MG)
     Route: 065
  2. PERAMPANEL [Concomitant]
     Active Substance: PERAMPANEL
     Indication: Product used for unknown indication
     Dosage: 81 TABLETS OF 2 MG PERAMPANEL HYDRATE (PER; I.E., A TOTAL OF 162 MG)
     Route: 065
  3. NEUROTROPIN [CYANOCOBALAMIN;LIDOCAINE HYDROCHLORIDE;PYRIDOXINE HYDROCH [Concomitant]
     Indication: Product used for unknown indication
     Dosage: 54 TABLETS OF 4 UNITS
     Route: 065
  4. REBAMIPIDE [Concomitant]
     Active Substance: REBAMIPIDE
     Indication: Product used for unknown indication
     Dosage: 26 TABLETS OF 100 MG
     Route: 065
  5. CELECOXIB [Concomitant]
     Active Substance: CELECOXIB
     Indication: Product used for unknown indication
     Dosage: 18 TABLETS OF 100 MG
     Route: 065
  6. LOXOPROFEN SODIUM [Concomitant]
     Active Substance: LOXOPROFEN SODIUM
     Indication: Product used for unknown indication
     Dosage: 2 TABLETS OF 60 MG
     Route: 065

REACTIONS (4)
  - Toxicity to various agents [Recovering/Resolving]
  - Clonic convulsion [Unknown]
  - Altered state of consciousness [Unknown]
  - Fall [Unknown]
